FAERS Safety Report 4630712-6 (Version None)
Quarter: 2005Q2

REPORT INFORMATION
  Report Type: 
  Country: None (occurrence: None)
  Receive Date: 20050406
  Receipt Date: 20050324
  Transmission Date: 20051028
  Serious: Yes (Hospitalization)
  Sender: FDA-Public Use
  Company Number: WAES 0503USA02123

PATIENT
  Age: 55 Year
  Sex: Female

DRUGS (8)
  1. FOSAMAX [Suspect]
     Indication: OSTEOPOROSIS
     Dosage: 5 MG/DAILY
     Route: 048
     Dates: start: 20040121, end: 20040212
  2. ADALAT [Concomitant]
  3. ASPIRIN [Concomitant]
  4. CYANOCOBALAMIN [Concomitant]
  5. MUCOSTA [Concomitant]
  6. PREDONINE [Concomitant]
  7. ROCALTROL [Concomitant]
  8. WARFARIN SODIUM [Concomitant]

REACTIONS (1)
  - PNEUMONIA [None]
